FAERS Safety Report 14454530 (Version 1)
Quarter: 2018Q1

REPORT INFORMATION
  Report Type: Spontaneous
  Country: US (occurrence: US)
  Receive Date: 20180128
  Receipt Date: 20180128
  Transmission Date: 20180509
  Serious: Yes (Disabling, Other)
  Sender: FDA-Public Use
  Company Number: None

PATIENT
  Age: 64 Year
  Sex: Female
  Weight: 81 kg

DRUGS (19)
  1. AMOXICILLIN. [Concomitant]
     Active Substance: AMOXICILLIN
  2. ZOLPIDEM [Concomitant]
     Active Substance: ZOLPIDEM\ZOLPIDEM TARTRATE
  3. VITAMIN C [Concomitant]
     Active Substance: ASCORBIC ACID
  4. VITAMIN D [Concomitant]
     Active Substance: CHOLECALCIFEROL
  5. METLAZONE [Concomitant]
  6. OSPHENA [Concomitant]
     Active Substance: OSPEMIFENE
  7. FOLIC ACID. [Concomitant]
     Active Substance: FOLIC ACID
  8. PROGESTERONE. [Concomitant]
     Active Substance: PROGESTERONE
  9. BUMETINDE [Concomitant]
  10. FLUTICASONE. [Concomitant]
     Active Substance: FLUTICASONE
  11. POTASSIUM CHLORIDE. [Concomitant]
     Active Substance: POTASSIUM CHLORIDE
  12. PRAMIPEXOLE. [Concomitant]
     Active Substance: PRAMIPEXOLE
  13. ASPERIN [Concomitant]
  14. ESTRODIAL/TESTOSTERONE JOJOBA 0.03%/0.1% OIL [Suspect]
     Active Substance: ESTRADIOL\TESTOSTERONE
     Indication: ATROPHIC VULVOVAGINITIS
     Dosage: ?          QUANTITY:1 DROP(S);?
     Route: 061
     Dates: start: 20180103, end: 20180121
  15. METHENAMINE HIPPIRATE [Concomitant]
  16. NYSTATIN. [Concomitant]
     Active Substance: NYSTATIN
  17. CYCLOBENZAPRINE. [Concomitant]
     Active Substance: CYCLOBENZAPRINE
  18. WARFARIN [Concomitant]
     Active Substance: WARFARIN
  19. IRON [Concomitant]
     Active Substance: IRON

REACTIONS (9)
  - Application site swelling [None]
  - Product deposit [None]
  - Application site haemorrhage [None]
  - Discomfort [None]
  - Application site pain [None]
  - Intentional product use issue [None]
  - Product substitution issue [None]
  - Product compounding quality issue [None]
  - Application site laceration [None]

NARRATIVE: CASE EVENT DATE: 20180122
